FAERS Safety Report 18072369 (Version 1)
Quarter: 2020Q3

REPORT INFORMATION
  Report Type: Spontaneous
  Country: US (occurrence: US)
  Receive Date: 20200726
  Receipt Date: 20200726
  Transmission Date: 20201103
  Serious: No
  Sender: FDA-Public Use
  Company Number: None

PATIENT
  Age: 24 Year
  Sex: Male
  Weight: 108 kg

DRUGS (8)
  1. VYVANSE [Concomitant]
     Active Substance: LISDEXAMFETAMINE DIMESYLATE
  2. MONTELUKAST [Concomitant]
     Active Substance: MONTELUKAST SODIUM
  3. DIPHENHYDRAMINE. [Concomitant]
     Active Substance: DIPHENHYDRAMINE
  4. ADDERALL [Concomitant]
     Active Substance: AMPHETAMINE ASPARTATE\AMPHETAMINE SULFATE\DEXTROAMPHETAMINE SACCHARATE\DEXTROAMPHETAMINE SULFATE
  5. FLUTICASONE PROPIONATE. [Concomitant]
     Active Substance: FLUTICASONE PROPIONATE
  6. MELATONIN [Concomitant]
     Active Substance: MELATONIN
  7. METHYLPREDNISOLONE TABLETS, USP 4 MG [Suspect]
     Active Substance: METHYLPREDNISOLONE
     Indication: OROPHARYNGEAL PAIN
     Dosage: ?          QUANTITY:21 TABLET(S);OTHER FREQUENCY:TAPERING DOSEAGE;?
     Route: 048
     Dates: start: 20200610, end: 20200615
  8. LEVOCETIRIZINE [Concomitant]
     Active Substance: LEVOCETIRIZINE

REACTIONS (1)
  - Urticaria [None]

NARRATIVE: CASE EVENT DATE: 20200618
